FAERS Safety Report 4373968-X (Version None)
Quarter: 2004Q2

REPORT INFORMATION
  Report Type: 
  Country: None (occurrence: None)
  Receive Date: 20040601
  Receipt Date: 20040209
  Transmission Date: 20050107
  Serious: No
  Sender: FDA-Public Use
  Company Number: MPS1-10130

PATIENT
  Age: 14 Year
  Sex: Male

DRUGS (1)
  1. ALDURAZYME [Suspect]
     Indication: MUCOPOLYSACCHARIDOSIS I
     Dates: start: 20031113

REACTIONS (6)
  - ABNORMAL SENSATION IN EYE [None]
  - BACK PAIN [None]
  - DISTURBANCE IN ATTENTION [None]
  - FATIGUE [None]
  - PAIN [None]
  - VISION BLURRED [None]
